FAERS Safety Report 7557531-5 (Version None)
Quarter: 2011Q2

REPORT INFORMATION
  Report Type: 
  Country: None (occurrence: None)
  Receive Date: 20110610
  Receipt Date: 20110530
  Transmission Date: 20111010
  Serious: Yes (Other)
  Sender: FDA-Public Use
  Company Number: 2011AP000995

PATIENT
  Age: 57 Year
  Sex: Female

DRUGS (2)
  1. CLARITHROMYCIN [Suspect]
     Indication: ACUTE SINUSITIS
     Dosage: 500 MG;BID;
  2. CLARITHROMYCIN [Concomitant]

REACTIONS (9)
  - RASH [None]
  - PAIN IN EXTREMITY [None]
  - COMPLEMENT FACTOR DECREASED [None]
  - ASTHENIA [None]
  - MYALGIA [None]
  - ARTHRALGIA [None]
  - RASH MORBILLIFORM [None]
  - ACTIVITIES OF DAILY LIVING IMPAIRED [None]
  - SERUM SICKNESS-LIKE REACTION [None]
